FAERS Safety Report 20945913 (Version 1)
Quarter: 2022Q2

REPORT INFORMATION
  Report Type: Spontaneous
  Country: US (occurrence: None)
  Receive Date: 20220609
  Receipt Date: 20220609
  Transmission Date: 20220721
  Serious: Yes (Death)
  Sender: FDA-Public Use
  Company Number: None

PATIENT
  Age: 66 Year
  Sex: Male

DRUGS (1)
  1. ESBRIET [Suspect]
     Active Substance: PIRFENIDONE
     Indication: Idiopathic pulmonary fibrosis
     Dosage: 801 MG TID ORAL?
     Route: 048
     Dates: start: 20220322, end: 20220527

REACTIONS (7)
  - Intracranial aneurysm [None]
  - Respiratory failure [None]
  - Pneumonia [None]
  - Hypotension [None]
  - Sepsis [None]
  - Renal impairment [None]
  - Loss of consciousness [None]

NARRATIVE: CASE EVENT DATE: 20220527
